FAERS Safety Report 23215089 (Version 2)
Quarter: 2024Q1

REPORT INFORMATION
  Report Type: Spontaneous
  Country: US (occurrence: US)
  Receive Date: 20231122
  Receipt Date: 20240215
  Transmission Date: 20240410
  Serious: No
  Sender: FDA-Public Use
  Company Number: US-GLENMARK PHARMACEUTICALS-2023GMK085474

PATIENT

DRUGS (8)
  1. PRAMIPEXOLE DIHYDROCHLORIDE [Suspect]
     Active Substance: PRAMIPEXOLE DIHYDROCHLORIDE
     Indication: Restless legs syndrome
     Dosage: 25 MILLIGRAM, QD
     Route: 065
     Dates: start: 20220803
  2. BETASERON [Concomitant]
     Active Substance: INTERFERON BETA-1B
     Indication: Multiple sclerosis
     Dosage: UNK UNK, QD
     Route: 065
     Dates: start: 20070202, end: 20230530
  3. PROGESTERONE [Concomitant]
     Active Substance: PROGESTERONE
     Indication: Menopause
     Dosage: 100 MILLIGRAM, QD
     Route: 065
     Dates: start: 202008
  4. ESTRADIOL [Concomitant]
     Active Substance: ESTRADIOL
     Indication: Menopause
     Dosage: 1.25 MILLIGRAM, QD
     Route: 065
     Dates: start: 202008
  5. NAPROXEN [Concomitant]
     Active Substance: NAPROXEN
     Indication: Multiple sclerosis
     Dosage: 500 MILLIGRAM
     Route: 065
     Dates: start: 20070228
  6. OXYBUTYNIN [Concomitant]
     Active Substance: OXYBUTYNIN\OXYBUTYNIN CHLORIDE
     Indication: Pollakiuria
     Dosage: 10 MILLIGRAM, QD
     Route: 065
     Dates: start: 20230201
  7. ZOLOFT [Concomitant]
     Active Substance: SERTRALINE HYDROCHLORIDE
     Indication: Depression
     Dosage: 100 MILLIGRAM, QD
     Route: 065
     Dates: start: 20170801
  8. ZOLOFT [Concomitant]
     Active Substance: SERTRALINE HYDROCHLORIDE
     Indication: Anxiety

REACTIONS (4)
  - Balance disorder [Recovered/Resolved]
  - Vision blurred [Recovered/Resolved]
  - Dizziness [Recovered/Resolved]
  - Product substitution issue [Unknown]

NARRATIVE: CASE EVENT DATE: 20220803
